FAERS Safety Report 24326763 (Version 2)
Quarter: 2024Q4

REPORT INFORMATION
  Report Type: Report from Study
  Country: CA (occurrence: CA)
  Receive Date: 20240917
  Receipt Date: 20241111
  Transmission Date: 20250115
  Serious: Yes (Other)
  Sender: SANDOZ
  Company Number: CA-SANDOZ-SDZ2024CA069791

PATIENT
  Sex: Female

DRUGS (3)
  1. HYRIMOZ [Suspect]
     Active Substance: ADALIMUMAB-ADAZ
     Dosage: 160 MG, WEEK 0=160MG WEEK 2=80MG THEN 40 MG EVERY OTHER WEEK BEGINNING OF WEEK 4;BIWEEKLY
     Route: 058
     Dates: start: 20240731
  2. HYRIMOZ [Suspect]
     Active Substance: ADALIMUMAB-ADAZ
     Indication: Crohn^s disease
     Dosage: 40 MG, Q2W, WEEK 0=160MG WEEK 2=80MG THEN 40 MG EVERY OTHER WEEK BEGINNING OF WEEK 4;BIWEEKLY
     Route: 058
     Dates: start: 20240731
  3. HYRIMOZ [Suspect]
     Active Substance: ADALIMUMAB-ADAZ
     Dosage: 80 MG, WEEK 0=160MG WEEK 2=80MG THEN 40 MG EVERY OTHER WEEK BEGINNING OF WEEK 4;BIWEEKLY
     Route: 058
     Dates: start: 20240731

REACTIONS (12)
  - Neovascular age-related macular degeneration [Recovered/Resolved]
  - Cataract [Unknown]
  - Malaise [Unknown]
  - Dyspepsia [Unknown]
  - Dizziness [Recovered/Resolved]
  - Diarrhoea [Unknown]
  - Arthritis [Recovered/Resolved]
  - Fatigue [Unknown]
  - Pain [Recovering/Resolving]
  - Head discomfort [Unknown]
  - Nausea [Unknown]
  - Injection site pain [Recovering/Resolving]
